FAERS Safety Report 4349465-4 (Version None)
Quarter: 2004Q2

REPORT INFORMATION
  Report Type: 
  Country: None (occurrence: None)
  Receive Date: 20040426
  Receipt Date: 20040413
  Transmission Date: 20050107
  Serious: Yes (Hospitalization)
  Sender: FDA-Public Use
  Company Number: 2004CG00708

PATIENT
  Age: 72 Year
  Sex: Male

DRUGS (11)
  1. MOPRAL [Suspect]
     Dosage: 20 MG DAILY PO
     Route: 048
  2. TOPLEXIL [Suspect]
     Dates: start: 20031027, end: 20031103
  3. KARDEGIC /FRA/ [Suspect]
     Dosage: 75 MG DAILY PO
     Route: 048
  4. LORAZEPAM [Suspect]
     Dosage: 0.5 MG DAILY PO
     Route: 048
     Dates: end: 20031031
  5. KERLONE [Suspect]
     Dosage: 20 MG DAILY PO
     Route: 048
  6. ELISOR [Suspect]
     Dosage: 20 MG DAILY PO
     Route: 048
  7. BRONCHOKOD [Suspect]
     Dates: start: 20031027, end: 20031103
  8. PARACETAMOL [Suspect]
     Dates: start: 20031027, end: 20031103
  9. ATROVENT [Suspect]
     Dosage: 2 PUFF DAILY IN
     Dates: start: 20030912
  10. ETIOVEN [Suspect]
     Dosage: 30 MG DAILY PO
     Route: 048
  11. VASTAREL ^BIOPHARMA^ [Suspect]
     Dosage: 60 MG DAILY PO
     Route: 048

REACTIONS (14)
  - ARTHRALGIA [None]
  - CARDIOLIPIN ANTIBODY POSITIVE [None]
  - DERMATITIS BULLOUS [None]
  - EOSINOPHIL COUNT INCREASED [None]
  - ERYTHEMA [None]
  - EXCORIATION [None]
  - FACE OEDEMA [None]
  - GAMMA-GLUTAMYLTRANSFERASE INCREASED [None]
  - LYMPHADENOPATHY [None]
  - MOUTH ULCERATION [None]
  - PEMPHIGOID [None]
  - PRURITUS [None]
  - SKIN OEDEMA [None]
  - TOXIC SKIN ERUPTION [None]
